FAERS Safety Report 4377566-3 (Version None)
Quarter: 2004Q2

REPORT INFORMATION
  Report Type: 
  Country: None (occurrence: None)
  Receive Date: 20040602
  Receipt Date: 20031001
  Transmission Date: 20050107
  Serious: Yes (Life-Threatening)
  Sender: FDA-Public Use
  Company Number: US-JNJFOC-20031003407

PATIENT
  Age: 38 Year
  Sex: Female
  Weight: 65.318 kg

DRUGS (10)
  1. PROPULSID [Suspect]
     Indication: GASTROOESOPHAGEAL REFLUX DISEASE
     Dosage: 10 MG, 4 IN 1 DAY
     Dates: start: 19950602
  2. PROPULSID [Suspect]
     Indication: HIATUS HERNIA
     Dosage: 10 MG, 4 IN 1 DAY
     Dates: start: 19950602
  3. ULTRAM [Concomitant]
  4. SECTRAL [Concomitant]
  5. CLARITIN [Concomitant]
  6. VANCENASE [Concomitant]
  7. PRILOSEC (OMEPRAOLE) [Concomitant]
  8. BIAXIN [Concomitant]
  9. DIFLUCAN [Concomitant]
  10. NAPROSYN [Concomitant]

REACTIONS (7)
  - CARDIAC DISORDER [None]
  - ELECTROCARDIOGRAM QT PROLONGED [None]
  - MUSCULOSKELETAL CHEST PAIN [None]
  - PALPITATIONS [None]
  - TORSADE DE POINTES [None]
  - VENTRICULAR FIBRILLATION [None]
  - VENTRICULAR TACHYCARDIA [None]
